FAERS Safety Report 6357776-6 (Version None)
Quarter: 2009Q3

REPORT INFORMATION
  Report Type: 
  Country: None (occurrence: None)
  Receive Date: 20090911
  Receipt Date: 20090829
  Transmission Date: 20100115
  Serious: Yes (Hospitalization, Other)
  Sender: FDA-Public Use
  Company Number: 1-19692481

PATIENT
  Age: 7 Year
  Sex: Female

DRUGS (1)
  1. SODIUM BENZOATE AND SODIUM PHENYLACETATE (MANUFACTURER NOT SPECIFIED) [Suspect]
     Indication: HYPERAMMONAEMIA
     Dosage: INTRAVENOUS
     Route: 042

REACTIONS (8)
  - APRAXIA [None]
  - ATAXIA [None]
  - COORDINATION ABNORMAL [None]
  - DEMYELINATION [None]
  - DYSARTHRIA [None]
  - GAIT DISTURBANCE [None]
  - MUSCLE SPASMS [None]
  - NUCLEAR MAGNETIC RESONANCE IMAGING BRAIN ABNORMAL [None]
